FAERS Safety Report 6616554-0 (Version None)
Quarter: 2010Q1

REPORT INFORMATION
  Report Type: 
  Country: None (occurrence: None)
  Receive Date: 20100305
  Receipt Date: 20100222
  Transmission Date: 20100710
  Serious: Yes (Other)
  Sender: FDA-Public Use
  Company Number: US-PFIZER INC-2010023740

PATIENT
  Sex: Female
  Weight: 49.895 kg

DRUGS (1)
  1. CHANTIX [Suspect]
     Indication: SMOKING CESSATION THERAPY
     Dates: start: 20100214

REACTIONS (4)
  - ALCOHOLISM [None]
  - OROPHARYNGEAL BLISTERING [None]
  - PRURITUS GENERALISED [None]
  - SKIN EXFOLIATION [None]
